FAERS Safety Report 24299942 (Version 4)
Quarter: 2024Q3

REPORT INFORMATION
  Report Type: Spontaneous
  Country: US (occurrence: US)
  Receive Date: 20240909
  Receipt Date: 20240925
  Transmission Date: 20241016
  Serious: Yes (Other)
  Sender: PFIZER
  Company Number: US-PFIZER INC-202400201558

PATIENT
  Age: 8 Year
  Sex: Male

DRUGS (2)
  1. OXBRYTA [Suspect]
     Active Substance: VOXELOTOR
     Dosage: 600 MG, DAILY (300MG, 2 TABLETS FOR ORAL SUSPENSION ONCE DAILY)
     Route: 048
     Dates: start: 2023
  2. OXBRYTA [Suspect]
     Active Substance: VOXELOTOR
     Dosage: 900 MG (3 TABLETS FOR ORAL SUSPENSION, ONCE DAILY)
     Route: 048

REACTIONS (1)
  - Drug ineffective [Unknown]
